FAERS Safety Report 6900105-7 (Version None)
Quarter: 2010Q3

REPORT INFORMATION
  Report Type: 
  Country: None (occurrence: None)
  Receive Date: 20100803
  Receipt Date: 20100730
  Transmission Date: 20110219
  Serious: Yes (Life-Threatening)
  Sender: FDA-Public Use
  Company Number: JP-ASTRAZENECA-2010SE35435

PATIENT
  Age: 68 Year
  Sex: Male
  Weight: 68 kg

DRUGS (7)
  1. IRESSA [Suspect]
     Indication: LUNG NEOPLASM MALIGNANT
     Route: 048
     Dates: start: 20100424, end: 20100509
  2. PYRINAZIN [Concomitant]
     Dosage: DOSE UNKNOWN
     Route: 048
  3. GRIMAC [Concomitant]
     Dosage: DOSE UNKNOWN
     Route: 048
  4. GASPORT-D [Concomitant]
     Dosage: DOSE UNKNOWN
     Route: 048
  5. MS CONTIN [Concomitant]
     Dosage: DOSE UNKNOWN
     Route: 048
  6. PANTOSIN [Concomitant]
     Dosage: DOSE UNKNOWN
  7. MODACIN [Concomitant]
     Dosage: DOSE UNKNOWN
     Route: 042
     Dates: start: 20100507

REACTIONS (1)
  - LUNG DISORDER [None]
